FAERS Safety Report 13759443 (Version 2)
Quarter: 2017Q3

REPORT INFORMATION
  Report Type: Spontaneous
  Country: JP (occurrence: JP)
  Receive Date: 20170717
  Receipt Date: 20170804
  Transmission Date: 20171127
  Serious: Yes (Hospitalization)
  Sender: FDA-Public Use
  Company Number: JP-B.I. PHARMACEUTICALS,INC./RIDGEFIELD-2017-NB-003957

PATIENT
  Age: 69 Year
  Sex: Male
  Weight: 68.3 kg

DRUGS (1)
  1. PRAZAXA [Suspect]
     Active Substance: DABIGATRAN ETEXILATE MESYLATE
     Indication: PROPHYLAXIS
     Route: 048
     Dates: start: 20170704, end: 20170707

REACTIONS (1)
  - Cerebellar infarction [Not Recovered/Not Resolved]

NARRATIVE: CASE EVENT DATE: 20170707
